FAERS Safety Report 13461076 (Version 5)
Quarter: 2017Q2

REPORT INFORMATION
  Report Type: Spontaneous
  Country: US (occurrence: US)
  Receive Date: 20170420
  Receipt Date: 20170628
  Transmission Date: 20170830
  Serious: Yes (Death, Hospitalization, Other)
  Sender: FDA-Public Use
  Company Number: US-ROCHE-1922204

PATIENT
  Age: 59 Year
  Sex: Male

DRUGS (5)
  1. SULFAMETHOXAZOLE [Concomitant]
     Active Substance: SULFAMETHOXAZOLE
  2. ESBRIET [Suspect]
     Active Substance: PIRFENIDONE
     Indication: IDIOPATHIC PULMONARY FIBROSIS
     Dosage: WEEK 1
     Route: 048
  3. ESBRIET [Suspect]
     Active Substance: PIRFENIDONE
     Dosage: WEEK 3
     Route: 048
     Dates: start: 20170324
  4. ESBRIET [Suspect]
     Active Substance: PIRFENIDONE
     Dosage: WEEK 2
     Route: 048
  5. PREDNISONE. [Concomitant]
     Active Substance: PREDNISONE
     Route: 065

REACTIONS (6)
  - Dyspnoea [Unknown]
  - Cough [Unknown]
  - Death [Fatal]
  - Dyspnoea [Unknown]
  - Dyspnoea [Not Recovered/Not Resolved]
  - Peripheral swelling [Unknown]

NARRATIVE: CASE EVENT DATE: 20170417
